FAERS Safety Report 18809854 (Version 1)
Quarter: 2021Q1

REPORT INFORMATION
  Report Type: Other
  Country: CA (occurrence: CA)
  Receive Date: 20210129
  Receipt Date: 20210129
  Transmission Date: 20210419
  Serious: Yes (Life-Threatening, Other)
  Sender: FDA-Public Use
  Company Number: CA-APOTEX-2021AP001601

PATIENT
  Age: 25 Year
  Sex: Male
  Weight: 87 kg

DRUGS (3)
  1. VENOFER [Interacting]
     Active Substance: IRON SUCROSE
     Indication: IRON DEFICIENCY ANAEMIA
     Dosage: 500 MILLIGRAM, SINGLE
     Route: 042
  2. RAMIPRIL. [Suspect]
     Active Substance: RAMIPRIL
     Indication: PRODUCT USED FOR UNKNOWN INDICATION
     Dosage: 10 MILLIGRAM, QD
     Route: 048
  3. VENOFER [Interacting]
     Active Substance: IRON SUCROSE
     Indication: CHRONIC KIDNEY DISEASE

REACTIONS (4)
  - Arthralgia [Recovered/Resolved]
  - Anaphylactic reaction [Recovered/Resolved]
  - Potentiating drug interaction [Recovered/Resolved]
  - Product quality issue [Recovered/Resolved]
